FAERS Safety Report 25380026 (Version 2)
Quarter: 2025Q4

REPORT INFORMATION
  Report Type: Report from Study
  Country: US (occurrence: US)
  Receive Date: 20250530
  Receipt Date: 20251109
  Transmission Date: 20260117
  Serious: Yes (Hospitalization)
  Sender: ABBVIE
  Company Number: US-ABBVIE-6087711

PATIENT
  Age: 25 Year
  Sex: Female

DRUGS (6)
  1. SKYRIZI [Suspect]
     Active Substance: RISANKIZUMAB-RZAA
     Indication: Crohn^s disease
     Dosage: TIME INTERVAL: TOTAL: FORM STRENGTH: 360MG/2.4M, WEEK 12
     Route: 058
     Dates: start: 20241213, end: 20241213
  2. SKYRIZI [Suspect]
     Active Substance: RISANKIZUMAB-RZAA
     Dosage: FORM STRENGTH: 360MG/2.4M, MISSED DOSE OF 04 APR 2025
     Route: 058
  3. SKYRIZI [Suspect]
     Active Substance: RISANKIZUMAB-RZAA
     Route: 058
     Dates: start: 2025
  4. SKYRIZI [Suspect]
     Active Substance: RISANKIZUMAB-RZAA
     Indication: Crohn^s disease
     Dosage: TIME INTERVAL: TOTAL: WEEK: 4, FORM STRENGTH: 600 MG
     Route: 042
     Dates: start: 20241018, end: 20241018
  5. SKYRIZI [Suspect]
     Active Substance: RISANKIZUMAB-RZAA
     Indication: Crohn^s disease
     Dosage: TIME INTERVAL: TOTAL: WEEK: 0, FORM STRENGTH: 600 MG
     Route: 042
     Dates: start: 20240920, end: 20241115
  6. SKYRIZI [Suspect]
     Active Substance: RISANKIZUMAB-RZAA
     Indication: Crohn^s disease
     Dosage: TIME INTERVAL: TOTAL: WEEK: 8, FORM STRENGTH: 600 MG
     Route: 042
     Dates: start: 20241115, end: 20241115

REACTIONS (11)
  - Large intestine infection [Unknown]
  - Abdominal pain [Not Recovered/Not Resolved]
  - Fatigue [Recovering/Resolving]
  - Asthenia [Unknown]
  - Nausea [Recovering/Resolving]
  - Abdominal distension [Recovering/Resolving]
  - Frequent bowel movements [Recovering/Resolving]
  - Flatulence [Recovering/Resolving]
  - Arthralgia [Recovering/Resolving]
  - Diarrhoea [Recovering/Resolving]
  - Faeces soft [Recovering/Resolving]

NARRATIVE: CASE EVENT DATE: 20250101
